FAERS Safety Report 7146656-4 (Version None)
Quarter: 2010Q4

REPORT INFORMATION
  Report Type: 
  Country: None (occurrence: None)
  Receive Date: 20101208
  Receipt Date: 20101119
  Transmission Date: 20110411
  Serious: Yes (Death, Other)
  Sender: FDA-Public Use
  Company Number: IE-GENENTECH-297280

PATIENT
  Sex: Female
  Weight: 50 kg

DRUGS (28)
  1. MABTHERA [Suspect]
     Indication: RHEUMATOID ARTHRITIS
     Dosage: 1ST INFUSION, ROUTE AS 1 GRAM
     Route: 042
     Dates: start: 20091014, end: 20091014
  2. MABTHERA [Suspect]
     Dosage: 1 G, UNK
     Route: 042
     Dates: start: 20091029, end: 20091029
  3. FOSAMAX [Concomitant]
     Indication: OSTEOPOROSIS
     Dosage: ALENDRONATE
     Route: 048
     Dates: start: 20070101
  4. ASPIRIN [Concomitant]
     Dosage: 75 MG, QAM
     Route: 048
  5. ASPIRIN [Concomitant]
     Route: 048
  6. ASPIRIN [Concomitant]
     Indication: PRODUCT USED FOR UNKNOWN INDICATION
  7. ASPIRIN [Concomitant]
     Route: 048
  8. PREDNISOLONE [Concomitant]
     Indication: RHEUMATOID ARTHRITIS
     Dosage: FREQUENCY: DAILY
     Route: 048
     Dates: start: 20071001
  9. PREDNISOLONE [Concomitant]
     Dosage: 40MG DAILY TO 5GM DAILY OVER 16
     Route: 048
     Dates: start: 20080226
  10. PREDNISOLONE [Concomitant]
     Dosage: UNK
     Route: 048
     Dates: start: 20080601
  11. METHYLPREDNISOLONE ACETATE [Concomitant]
     Indication: PREMEDICATION
     Dosage: 200 MG, UNK
     Route: 042
  12. METHYLPREDNISOLONE ACETATE [Concomitant]
     Dosage: 12.5 MG, 1/WEEK
     Route: 042
     Dates: start: 20080422, end: 20080801
  13. PARACETAMOL [Concomitant]
     Indication: PREMEDICATION
     Dosage: 1 G, UNK
     Route: 048
  14. PARACETAMOL [Concomitant]
     Dosage: PRE MED.
     Route: 048
  15. PIRITON [Concomitant]
     Indication: PREMEDICATION
     Dosage: 10 MG, UNK
  16. PIRITON [Concomitant]
     Dosage: PREMED.  DRUG NAME REPORTED AS CHLOROPHENAMINE.
  17. CALCICHEW [Concomitant]
     Indication: PRODUCT USED FOR UNKNOWN INDICATION
  18. DELTACORTILEN [Concomitant]
     Indication: PRODUCT USED FOR UNKNOWN INDICATION
     Dosage: 5 MG, UNK
  19. CALCIUM/VITAMIN D [Concomitant]
     Indication: OSTEOPOROSIS
     Dosage: UNK
     Route: 048
     Dates: start: 20070101
  20. METHOTREXATE [Concomitant]
     Indication: MYOSITIS
     Dosage: 12.5 MG, 1/WEEK
     Route: 048
     Dates: start: 20080501
  21. IMMUNE GLOBULIN NOS [Concomitant]
     Indication: MYOSITIS
     Dosage: UNK
     Route: 042
     Dates: start: 20080801, end: 20090401
  22. METHYLPREDNISOLONE [Concomitant]
     Dosage: X1 DOSE 30 MINS PREMABTHERA INFUSION.
     Route: 042
  23. METHYLPREDNISOLONE [Concomitant]
     Dosage: X1 DOSE 30 MINS PREMABTHERA INFUSION.
     Route: 042
  24. METHYLPREDNISOLONE [Concomitant]
     Route: 042
     Dates: start: 20080422, end: 20080801
  25. DELTACORTRIL [Concomitant]
     Dosage: DRUG NAME DELTACORTRIL 5 MG.
  26. IMMUNE GLOBULIN IV NOS [Concomitant]
     Indication: MYOSITIS
     Route: 042
     Dates: start: 20080801, end: 20090401
  27. ARIPIPRAZOLE [Concomitant]
     Indication: PRODUCT USED FOR UNKNOWN INDICATION
  28. FERROUS FUMARATE [Concomitant]
     Indication: PRODUCT USED FOR UNKNOWN INDICATION

REACTIONS (13)
  - AMENORRHOEA [None]
  - ANXIETY [None]
  - BLOOD GLUCOSE DECREASED [None]
  - BLOOD PROLACTIN INCREASED [None]
  - CEREBROVASCULAR ACCIDENT [None]
  - CONFUSIONAL STATE [None]
  - DEPRESSION [None]
  - DISORIENTATION [None]
  - DISTURBANCE IN ATTENTION [None]
  - HALLUCINATION [None]
  - MYELODYSPLASTIC SYNDROME [None]
  - PARANOIA [None]
  - PROGRESSIVE MULTIFOCAL LEUKOENCEPHALOPATHY [None]
